FAERS Safety Report 10997130 (Version 1)
Quarter: 2015Q2

REPORT INFORMATION
  Report Type: Spontaneous
  Country: US (occurrence: US)
  Receive Date: 20150408
  Receipt Date: 20150408
  Transmission Date: 20150821
  Serious: No
  Sender: FDA-Public Use
  Company Number: US-ASTRAZENECA-2015SE30498

PATIENT
  Sex: Male
  Weight: 88.5 kg

DRUGS (3)
  1. ATORVASTATIN [Concomitant]
     Active Substance: ATORVASTATIN
     Indication: BLOOD CHOLESTEROL
  2. ZETIA [Concomitant]
     Active Substance: EZETIMIBE
  3. BYDUREON [Suspect]
     Active Substance: EXENATIDE
     Indication: TYPE 2 DIABETES MELLITUS
     Dosage: 2 MG 4 COUNT
     Route: 065
     Dates: start: 2014

REACTIONS (2)
  - Injection site extravasation [Unknown]
  - Intentional product misuse [Unknown]
